FAERS Safety Report 7799770-4 (Version None)
Quarter: 2011Q4

REPORT INFORMATION
  Report Type: 
  Country: None (occurrence: None)
  Receive Date: 20111006
  Receipt Date: 20110928
  Transmission Date: 20120403
  Serious: Yes (Other)
  Sender: FDA-Public Use
  Company Number: US-SANOFI-AVENTIS-2011SA064728

PATIENT
  Age: 67 Year
  Sex: Female

DRUGS (2)
  1. LANTUS [Suspect]
     Dosage: DOSE:60 UNIT(S)
     Route: 058
     Dates: start: 20110101
  2. SOLOSTAR [Suspect]
     Dates: start: 20110101

REACTIONS (4)
  - DEVICE MALFUNCTION [None]
  - BLOOD GLUCOSE INCREASED [None]
  - INJECTION SITE PAIN [None]
  - LYMPHOMA OPERATION [None]
